FAERS Safety Report 16834717 (Version 2)
Quarter: 2019Q4

REPORT INFORMATION
  Report Type: Spontaneous
  Country: US (occurrence: US)
  Receive Date: 20190920
  Receipt Date: 20191030
  Transmission Date: 20200122
  Serious: Yes (Hospitalization, Other)
  Sender: FDA-Public Use
  Company Number: US-JNJFOC-20190913912

PATIENT
  Sex: Male
  Weight: 88.53 kg

DRUGS (1)
  1. DURAGESIC [Suspect]
     Active Substance: FENTANYL
     Indication: PAIN
     Route: 062
     Dates: start: 2001

REACTIONS (29)
  - Face injury [Unknown]
  - Seizure [Unknown]
  - Sensory disturbance [Unknown]
  - Hyperphagia [Unknown]
  - Mood swings [Unknown]
  - Femur fracture [Unknown]
  - Injury [Unknown]
  - Amnesia [Unknown]
  - Vomiting [Unknown]
  - Irritability [Unknown]
  - Coma [Recovered/Resolved]
  - Device leakage [Unknown]
  - Product adhesion issue [Unknown]
  - Wrong technique in product usage process [Unknown]
  - Leg amputation [Unknown]
  - Rib fracture [Unknown]
  - Sternal fracture [Unknown]
  - Loss of consciousness [Unknown]
  - Overdose [Unknown]
  - Drug withdrawal syndrome [Unknown]
  - Product dose omission [Unknown]
  - Vertigo [Unknown]
  - Surgery [Unknown]
  - Facial bones fracture [Unknown]
  - Road traffic accident [Unknown]
  - Insomnia [Unknown]
  - Off label use [Unknown]
  - Wrist fracture [Unknown]
  - Chills [Unknown]

NARRATIVE: CASE EVENT DATE: 2002
